FAERS Safety Report 10330987 (Version 1)
Quarter: 2014Q3

REPORT INFORMATION
  Report Type: Spontaneous
  Country: US (occurrence: None)
  Receive Date: 20140721
  Receipt Date: 20140721
  Transmission Date: 20150326
  Serious: Yes (Hospitalization)
  Sender: FDA-Public Use
  Company Number: None

PATIENT
  Age: 76 Year
  Sex: Male
  Weight: 90.1 kg

DRUGS (2)
  1. ALBUTEROL. [Suspect]
     Active Substance: ALBUTEROL
     Indication: ATRIAL FLUTTER
     Route: 055
     Dates: start: 20130718
  2. BUDESONIDE/ FORMOTROL [Suspect]
     Active Substance: BUDESONIDE\FORMOTEROL
     Indication: ATRIAL FLUTTER
     Route: 055
     Dates: start: 20131203, end: 20140201

REACTIONS (2)
  - Atrial flutter [None]
  - Palpitations [None]

NARRATIVE: CASE EVENT DATE: 20140131
